FAERS Safety Report 4284993-1 (Version None)
Quarter: 2004Q1

REPORT INFORMATION
  Report Type: 
  Country: None (occurrence: None)
  Receive Date: 20040203
  Receipt Date: 20040203
  Transmission Date: 20041129
  Serious: No
  Sender: FDA-Public Use
  Company Number: None

PATIENT
  Age: 34 Year
  Sex: Female
  Weight: 64.8644 kg

DRUGS (1)
  1. ZOLOFT [Suspect]
     Indication: PREMENSTRUAL SYNDROME
     Dosage: 100MG ONCE A DAY ORAL
     Route: 048
     Dates: start: 20020201, end: 20040202

REACTIONS (6)
  - ALOPECIA [None]
  - ANXIETY [None]
  - DEPRESSION [None]
  - THYROID DISORDER [None]
  - WEIGHT DECREASED [None]
  - WEIGHT INCREASED [None]
